FAERS Safety Report 4498475-5 (Version None)
Quarter: 2004Q4

REPORT INFORMATION
  Report Type: 
  Country: None (occurrence: None)
  Receive Date: 20041105
  Receipt Date: 20041026
  Transmission Date: 20050328
  Serious: Yes (Hospitalization, Other)
  Sender: FDA-Public Use
  Company Number: 2004-10-1996

PATIENT
  Age: 53 Year

DRUGS (2)
  1. INTERFERON ALFA-2B INJECTABLE (LIKE INTRON A) [Suspect]
     Indication: MALIGNANT MELANOMA
     Dosage: SEE IMAGE
     Route: 042
  2. RADIATION THERAPY [Suspect]
     Indication: MALIGNANT MELANOMA
     Dosage: 2 GY X-RAY THERAPY (25 DOSES)

REACTIONS (9)
  - BREAST OEDEMA [None]
  - CELLULITIS [None]
  - ERYTHEMA [None]
  - FIBROSIS [None]
  - IMPAIRED HEALING [None]
  - RADIATION PNEUMONITIS [None]
  - SKIN DESQUAMATION [None]
  - SKIN ULCER [None]
  - THERAPEUTIC AGENT TOXICITY [None]
